FAERS Safety Report 15046131 (Version 2)
Quarter: 2019Q1

REPORT INFORMATION
  Report Type: Report from Study
  Country: FR (occurrence: FR)
  Receive Date: 20180621
  Receipt Date: 20190321
  Transmission Date: 20190417
  Serious: Yes (Death, Hospitalization, Other)
  Sender: FDA-Public Use
  Company Number: FR-MYLANLABS-2018M1041746

PATIENT
  Age: 62 Year
  Sex: Male
  Weight: 65 kg

DRUGS (9)
  1. CYTARABINE. [Concomitant]
     Active Substance: CYTARABINE
     Indication: PERIPHERAL T-CELL LYMPHOMA UNSPECIFIED
     Dosage: UNK
     Route: 065
  2. DEXAMETHASONE. [Concomitant]
     Active Substance: DEXAMETHASONE
     Indication: PERIPHERAL T-CELL LYMPHOMA UNSPECIFIED
     Dosage: UNK
     Route: 065
     Dates: start: 20170523, end: 201705
  3. CISPLATIN. [Concomitant]
     Active Substance: CISPLATIN
     Indication: PERIPHERAL T-CELL LYMPHOMA UNSPECIFIED
     Dosage: UNK
     Route: 065
     Dates: start: 20170523, end: 201705
  4. BRENTUXIMAB VEDOTIN [Suspect]
     Active Substance: BRENTUXIMAB VEDOTIN
     Dosage: 75 MG, UNK
     Route: 050
     Dates: start: 20170307
  5. GEMCITABINE [Suspect]
     Active Substance: GEMCITABINE\GEMCITABINE HYDROCHLORIDE
     Indication: PERIPHERAL T-CELL LYMPHOMA UNSPECIFIED
     Dosage: 1500 MG, UNK
     Route: 042
     Dates: start: 20170629, end: 20170707
  6. NAVELBINE [Suspect]
     Active Substance: VINORELBINE TARTRATE
     Indication: PERIPHERAL T-CELL LYMPHOMA UNSPECIFIED
     Dosage: 45 MG, UNK
     Route: 042
     Dates: start: 20170629, end: 20170707
  7. BRENTUXIMAB VEDOTIN [Suspect]
     Active Substance: BRENTUXIMAB VEDOTIN
     Dosage: 80 MG, UNK
     Route: 050
     Dates: start: 20170214, end: 20170331
  8. ICE                                /06761101/ [Concomitant]
     Indication: PERIPHERAL T-CELL LYMPHOMA UNSPECIFIED
     Dosage: UNK
     Route: 065
  9. BRENTUXIMAB VEDOTIN [Suspect]
     Active Substance: BRENTUXIMAB VEDOTIN
     Indication: PERIPHERAL T-CELL LYMPHOMA UNSPECIFIED
     Dosage: 73 MG, UNK
     Route: 050
     Dates: start: 20170331

REACTIONS (7)
  - General physical health deterioration [Fatal]
  - Weight decreased [Unknown]
  - Aplasia [Fatal]
  - Off label use [Unknown]
  - Hypotension [Fatal]
  - Altered state of consciousness [Fatal]
  - Sepsis [Fatal]

NARRATIVE: CASE EVENT DATE: 2017
